FAERS Safety Report 5086483-5 (Version None)
Quarter: 2006Q3

REPORT INFORMATION
  Report Type: 
  Country: None (occurrence: None)
  Receive Date: 20060823
  Receipt Date: 20060821
  Transmission Date: 20061208
  Serious: Yes (Hospitalization)
  Sender: FDA-Public Use
  Company Number: DE-AVENTIS-200612464DE

PATIENT
  Age: 51 Year
  Sex: Female
  Weight: 51 kg

DRUGS (1)
  1. DOCETAXEL [Suspect]
     Indication: CHEMOTHERAPY
     Route: 042
     Dates: start: 20060803

REACTIONS (2)
  - RETROGRADE AMNESIA [None]
  - TRANSIENT PSYCHOSIS [None]
